FAERS Safety Report 5244256-4 (Version None)
Quarter: 2007Q1

REPORT INFORMATION
  Report Type: 
  Country: None (occurrence: None)
  Receive Date: 20070216
  Receipt Date: 20070130
  Transmission Date: 20070707
  Serious: Yes (Disabling)
  Sender: FDA-Public Use
  Company Number: 2007RR-05500

PATIENT
  Sex: Female

DRUGS (9)
  1. SIMVASTATIN [Suspect]
     Dosage: 10 MG, QD
  2. FOLIC ACID [Concomitant]
  3. FURAMIDE [Concomitant]
  4. GAVISCON [Concomitant]
  5. IRON SULPHATE [Concomitant]
  6. LACTULOSE [Concomitant]
  7. OMEPRAZOLE [Concomitant]
  8. PREDNISOLONE [Concomitant]
  9. ZINC SULPHATE [Concomitant]

REACTIONS (1)
  - COUGH [None]
